FAERS Safety Report 26044335 (Version 1)
Quarter: 2025Q4

REPORT INFORMATION
  Report Type: Spontaneous
  Country: CN (occurrence: CN)
  Receive Date: 20251114
  Receipt Date: 20251114
  Transmission Date: 20260118
  Serious: Yes (Hospitalization, Other)
  Sender: BAXTER
  Company Number: None

PATIENT
  Age: 61 Year
  Sex: Male
  Weight: 56 kg

DRUGS (4)
  1. CYCLOPHOSPHAMIDE [Suspect]
     Active Substance: CYCLOPHOSPHAMIDE
     Indication: Diffuse large B-cell lymphoma stage IV
     Dosage: 0.8 G, QD (IVGTT), D1 (REDUCED-DOSE CHOP REGIMEN)
     Route: 041
     Dates: start: 20251018, end: 20251018
  2. EPIRUBICIN HYDROCHLORIDE [Suspect]
     Active Substance: EPIRUBICIN HYDROCHLORIDE
     Indication: Diffuse large B-cell lymphoma stage IV
     Dosage: 80 MG, QD (IVGTT), D1 (REDUCED-DOSE CHOP REGIMEN)
     Route: 041
     Dates: start: 20251018, end: 20251018
  3. VINDESINE SULFATE [Suspect]
     Active Substance: VINDESINE SULFATE
     Indication: Diffuse large B-cell lymphoma stage IV
     Dosage: 4 MG, QD (IVGTT), D1 (REDUCED-DOSE CHOP REGIMEN)
     Route: 041
     Dates: start: 20251018, end: 20251018
  4. PREDNISONE ACETATE [Suspect]
     Active Substance: PREDNISONE ACETATE
     Indication: Diffuse large B-cell lymphoma stage IV
     Dosage: 10 MG, QD, (PO), D1-5 (REDUCED-DOSE CHOP REGIMEN)
     Route: 048
     Dates: start: 20251018, end: 20251022

REACTIONS (10)
  - Oedema peripheral [Unknown]
  - Myelosuppression [Recovering/Resolving]
  - Haemoglobin decreased [Recovering/Resolving]
  - White blood cell count decreased [Recovering/Resolving]
  - Neutrophil count decreased [Recovering/Resolving]
  - Platelet count decreased [Recovering/Resolving]
  - Asthenia [Unknown]
  - Temperature intolerance [Unknown]
  - Pyrexia [Recovered/Resolved]
  - Discomfort [Unknown]

NARRATIVE: CASE EVENT DATE: 20251030
